FAERS Safety Report 6581765-X (Version None)
Quarter: 2010Q1

REPORT INFORMATION
  Report Type: 
  Country: None (occurrence: None)
  Receive Date: 20100215
  Receipt Date: 20100204
  Transmission Date: 20100710
  Serious: Yes (Hospitalization, Other)
  Sender: FDA-Public Use
  Company Number: PHHY2010CH05948

PATIENT
  Sex: Male

DRUGS (3)
  1. LEPONEX [Suspect]
     Indication: SCHIZOPHRENIA, PARANOID TYPE
     Dosage: 500 MG/DAY
     Dates: start: 20010101
  2. RISPERDAL CONSTA [Suspect]
     Indication: SCHIZOPHRENIA, PARANOID TYPE
     Dosage: 37.5 MG, BIW
     Dates: start: 20010101
  3. TEMESTA [Concomitant]
     Dosage: UNK
     Dates: start: 20010101

REACTIONS (2)
  - DIABETES MELLITUS [None]
  - SINUS TACHYCARDIA [None]
